FAERS Safety Report 15764476 (Version 1)
Quarter: 2018Q4

REPORT INFORMATION
  Report Type: Spontaneous
  Country: US (occurrence: US)
  Receive Date: 20181226
  Receipt Date: 20181226
  Transmission Date: 20190205
  Serious: No
  Sender: FDA-Public Use
  Company Number: None

PATIENT
  Age: 76 Year
  Sex: Female

DRUGS (4)
  1. METFORMIN, XGEVA,ATORVASTATIN [Concomitant]
  2. HYDROCHLOROT, LOPRESSOR [Concomitant]
  3. ALECENSA [Suspect]
     Active Substance: ALECTINIB HYDROCHLORIDE
     Indication: LUNG NEOPLASM MALIGNANT
     Route: 048
     Dates: start: 20170130
  4. ADVAI DISKU,  SYNTHROID, CALTRATE+D [Concomitant]

REACTIONS (1)
  - Brain neoplasm [None]
